FAERS Safety Report 19655974 (Version 4)
Quarter: 2022Q1

REPORT INFORMATION
  Report Type: Report from Study
  Country: CA (occurrence: CA)
  Receive Date: 20210804
  Receipt Date: 20220307
  Transmission Date: 20220424
  Serious: Yes (Other)
  Sender: FDA-Public Use
  Company Number: CA-JNJFOC-20210765995

PATIENT
  Age: 59 Year
  Sex: Female

DRUGS (3)
  1. REMICADE [Suspect]
     Active Substance: INFLIXIMAB
     Indication: Crohn^s disease
     Route: 042
     Dates: start: 20080311
  2. REMICADE [Suspect]
     Active Substance: INFLIXIMAB
     Indication: Ankylosing spondylitis
     Route: 042
     Dates: start: 20211001
  3. REMICADE [Suspect]
     Active Substance: INFLIXIMAB
     Dosage: ORDER TO DECREASE TO ONCE 4 WEEKS
     Route: 042

REACTIONS (3)
  - Basal cell carcinoma [Unknown]
  - Ankylosing spondylitis [Unknown]
  - Drug level increased [Unknown]

NARRATIVE: CASE EVENT DATE: 20210705
